FAERS Safety Report 6494396-7 (Version None)
Quarter: 2009Q4

REPORT INFORMATION
  Report Type: 
  Country: None (occurrence: None)
  Receive Date: 20091214
  Receipt Date: 20090213
  Transmission Date: 20100525
  Serious: No
  Sender: FDA-Public Use
  Company Number: US-BRISTOL-MYERS SQUIBB COMPANY-14505994

PATIENT
  Age: 15 Year
  Sex: Male
  Weight: 97 kg

DRUGS (3)
  1. ABILIFY [Suspect]
     Indication: AUTISM
     Dates: start: 20060501
  2. RITALIN [Concomitant]
  3. FLINTSTONES MULTIVITAMIN [Concomitant]

REACTIONS (1)
  - HEPATIC STEATOSIS [None]
